FAERS Safety Report 10015789 (Version 2)
Quarter: 2014Q2

REPORT INFORMATION
  Report Type: Spontaneous
  Country: US (occurrence: US)
  Receive Date: 20140317
  Receipt Date: 20140527
  Transmission Date: 20141212
  Serious: Yes (Hospitalization)
  Sender: FDA-Public Use
  Company Number: US-BAYER-2014-040048

PATIENT
  Age: 35 Year
  Sex: Female
  Weight: 96.15 kg

DRUGS (5)
  1. MIRENA [Suspect]
     Indication: CONTRACEPTION
     Dosage: 20 MCG/24HR, CONT
     Route: 015
     Dates: start: 20071116, end: 20120319
  2. MIRENA [Suspect]
     Indication: MENORRHAGIA
  3. FLEXERIL [Concomitant]
  4. IBUPROFEN BAYER [Concomitant]
     Dosage: UNK
     Dates: start: 20120216
  5. TAMIFLU [Concomitant]
     Dosage: UNK
     Dates: start: 20120216

REACTIONS (8)
  - Uterine perforation [None]
  - Medical device discomfort [None]
  - Procedural pain [None]
  - Injury [None]
  - Scar [None]
  - General physical health deterioration [None]
  - Pain [None]
  - Device issue [None]
